FAERS Safety Report 13339745 (Version 3)
Quarter: 2017Q1

REPORT INFORMATION
  Report Type: Report from Study
  Country: None (occurrence: US)
  Receive Date: 20170315
  Receipt Date: 20170321
  Transmission Date: 20170428
  Serious: Yes (Hospitalization, Other)
  Sender: FDA-Public Use
  Company Number: US-ABBVIE-17K-163-1902000-00

PATIENT
  Age: 34 Year
  Sex: Male
  Weight: 72.64 kg

DRUGS (2)
  1. DEPAKOTE ER [Suspect]
     Active Substance: DIVALPROEX SODIUM
     Route: 048
  2. DEPAKOTE ER [Suspect]
     Active Substance: DIVALPROEX SODIUM
     Indication: HEADACHE
     Route: 048

REACTIONS (5)
  - Stress [Unknown]
  - Cerebrovascular accident [Unknown]
  - Inappropriate schedule of drug administration [Unknown]
  - Cerebrovascular accident [Unknown]
  - Cerebrovascular accident [Recovering/Resolving]

NARRATIVE: CASE EVENT DATE: 2008
